FAERS Safety Report 9853191 (Version 2)
Quarter: 2014Q4

REPORT INFORMATION
  Report Type: Spontaneous
  Country: US (occurrence: US)
  Receive Date: 20140129
  Receipt Date: 20141112
  Transmission Date: 20150529
  Serious: No
  Sender: FDA-Public Use
  Company Number: US-BRACCO-008961

PATIENT

DRUGS (1)
  1. MULTIHANCE [Suspect]
     Active Substance: GADOBENATE DIMEGLUMINE
     Indication: DIAGNOSTIC PROCEDURE
     Route: 042

REACTIONS (2)
  - Erythema [Unknown]
  - Pruritus [Unknown]
